FAERS Safety Report 23087338 (Version 3)
Quarter: 2025Q2

REPORT INFORMATION
  Report Type: Spontaneous
  Country: US (occurrence: US)
  Receive Date: 20231020
  Receipt Date: 20250519
  Transmission Date: 20250717
  Serious: No
  Sender: SANOFI AVENTIS
  Company Number: US-SA-SAC20231017000080

PATIENT
  Age: 17 Year
  Sex: Female
  Weight: 61.6 kg

DRUGS (1)
  1. DUPIXENT [Suspect]
     Active Substance: DUPILUMAB
     Indication: Dermatitis atopic
     Dosage: 300 MG, QOW
     Route: 058
     Dates: start: 20220828

REACTIONS (2)
  - COVID-19 [Unknown]
  - Rash [Unknown]
